FAERS Safety Report 6493063-3 (Version None)
Quarter: 2009Q4

REPORT INFORMATION
  Report Type: 
  Country: None (occurrence: None)
  Receive Date: 20091214
  Receipt Date: 20091204
  Transmission Date: 20100525
  Serious: Yes (Other)
  Sender: FDA-Public Use
  Company Number: IE-JNJFOC-20091101491

PATIENT
  Sex: Female

DRUGS (2)
  1. CAELYX [Suspect]
     Indication: OVARIAN CANCER
     Dosage: CYCLE 1  23 ML GIVEN BEFORE STOPPED
     Route: 042
  2. ANTACID TAB [Concomitant]
     Route: 065

REACTIONS (5)
  - BACK PAIN [None]
  - FLUSHING [None]
  - HEADACHE [None]
  - NAUSEA [None]
  - PAIN IN EXTREMITY [None]
